FAERS Safety Report 4641668-4 (Version None)
Quarter: 2005Q2

REPORT INFORMATION
  Report Type: 
  Country: None (occurrence: None)
  Receive Date: 20050420
  Receipt Date: 20050408
  Transmission Date: 20051028
  Serious: Yes (Life-Threatening, Hospitalization)
  Sender: FDA-Public Use
  Company Number: 05P-013-0296899-00

PATIENT
  Age: 74 Year
  Sex: Female

DRUGS (5)
  1. HUMIRA [Suspect]
     Indication: RHEUMATOID ARTHRITIS
     Dosage: 40 MG, 1 IN 2 WK, SUBCUTANEOUS
     Route: 058
     Dates: start: 20050211, end: 20050331
  2. NAPROXEN SODIUM [Concomitant]
  3. PREDNISOLONE [Concomitant]
  4. RANITIDINE HYDROCHLORIDE [Concomitant]
  5. NIFEDIPINE [Concomitant]

REACTIONS (4)
  - ACUTE RESPIRATORY DISTRESS SYNDROME [None]
  - ESCHERICHIA URINARY TRACT INFECTION [None]
  - INFARCTION [None]
  - SEPTIC SHOCK [None]
